FAERS Safety Report 4509363-X (Version None)
Quarter: 2004Q4

REPORT INFORMATION
  Report Type: 
  Country: None (occurrence: None)
  Receive Date: 20041025
  Receipt Date: 20040813
  Transmission Date: 20050328
  Serious: Yes (Hospitalization)
  Sender: FDA-Public Use
  Company Number: US-JNJFOC-20040805110

PATIENT
  Age: 42 Year
  Sex: Female
  Weight: 72.5755 kg

DRUGS (14)
  1. REMICADE [Suspect]
     Indication: RHEUMATOID ARTHRITIS
     Dosage: INTRAVENOUS
     Route: 042
     Dates: start: 20030601
  2. REMICADE [Suspect]
     Indication: RHEUMATOID ARTHRITIS
     Dosage: INTRAVENOUS
     Route: 042
     Dates: start: 20040604
  3. HYDROXYCHLOROQUINE SULFATE [Concomitant]
  4. PREDNISONE [Concomitant]
  5. GUANFACINE HCL [Concomitant]
  6. PLENDIL [Concomitant]
  7. MONOPRIL [Concomitant]
  8. METOPROLOL TARTRATE [Concomitant]
  9. HYDROCHLOROTHIAZIDE [Concomitant]
  10. ARAVA [Concomitant]
  11. ZOCOR [Concomitant]
  12. TRAZODONE HCL [Concomitant]
  13. XANAX [Concomitant]
  14. FLEXARIL (CYCLOBENZAPRINE HYDROCHLORIDE) [Concomitant]

REACTIONS (6)
  - CELLULITIS [None]
  - EAR INFECTION [None]
  - EYE INFECTION [None]
  - FURUNCLE [None]
  - UPPER RESPIRATORY TRACT INFECTION [None]
  - VULVAL ABSCESS [None]
